FAERS Safety Report 9878552 (Version 1)
Quarter: 2014Q1

REPORT INFORMATION
  Report Type: Report from Study
  Country: CA (occurrence: CA)
  Receive Date: 20140206
  Receipt Date: 20140206
  Transmission Date: 20141002
  Serious: Yes (Other)
  Sender: FDA-Public Use
  Company Number: CA-BRISTOL-MYERS SQUIBB COMPANY-20107835

PATIENT
  Age: 74 Year
  Sex: Female

DRUGS (9)
  1. ORENCIA [Suspect]
     Indication: RHEUMATOID ARTHRITIS
     Dates: start: 20080505
  2. APO-FOLIC [Concomitant]
  3. METHOTREXATE [Concomitant]
  4. LIPITOR [Concomitant]
  5. SYNTHROID [Concomitant]
  6. APO-HYDRO [Concomitant]
  7. CELEBREX [Concomitant]
  8. ASAPHEN [Concomitant]
  9. ZOPICLONE [Concomitant]

REACTIONS (1)
  - Cataract [Recovered/Resolved]
